FAERS Safety Report 7133316-9 (Version None)
Quarter: 2010Q4

REPORT INFORMATION
  Report Type: 
  Country: None (occurrence: None)
  Receive Date: 20101202
  Receipt Date: 20101122
  Transmission Date: 20110411
  Serious: Yes (Other)
  Sender: FDA-Public Use
  Company Number: US-BAXTER-2010BH029036

PATIENT
  Age: 23 Year
  Sex: Female

DRUGS (5)
  1. NAFCILLIN SODIUM [Suspect]
     Indication: STAPHYLOCOCCAL INFECTION
     Route: 065
  2. NAFCILLIN SODIUM [Suspect]
     Route: 065
  3. AMPICILLIN [Concomitant]
     Indication: PRODUCT USED FOR UNKNOWN INDICATION
     Route: 065
  4. GENTAMICIN [Concomitant]
     Indication: PRODUCT USED FOR UNKNOWN INDICATION
     Route: 065
  5. CLINDAMYCIN [Concomitant]
     Indication: PRODUCT USED FOR UNKNOWN INDICATION
     Route: 065

REACTIONS (1)
  - HYPOKALAEMIA [None]
